FAERS Safety Report 9266224 (Version 2)
Quarter: 2013Q2

REPORT INFORMATION
  Report Type: Spontaneous
  Country: US (occurrence: US)
  Receive Date: 20130502
  Receipt Date: 20130517
  Transmission Date: 20140414
  Serious: Yes (Hospitalization, Other)
  Sender: FDA-Public Use
  Company Number: US-009507513-1304USA016735

PATIENT
  Age: 51 Year
  Sex: Female

DRUGS (5)
  1. SAPHRIS [Suspect]
     Dosage: 5 MG, QAM
     Route: 060
  2. SAPHRIS [Suspect]
     Dosage: 10 MG, HS
     Route: 060
  3. PROPRANOLOL HYDROCHLORIDE [Concomitant]
  4. AMBIEN [Concomitant]
     Dosage: 10 MG, HS
  5. LAMICTAL [Concomitant]
     Dosage: 25MG TAPER

REACTIONS (3)
  - Cerebrovascular accident [Recovering/Resolving]
  - Delusion [Recovering/Resolving]
  - Anxiety [Recovering/Resolving]
